FAERS Safety Report 13613302 (Version 3)
Quarter: 2017Q3

REPORT INFORMATION
  Report Type: Report from Study
  Country: US (occurrence: US)
  Receive Date: 20170605
  Receipt Date: 20170808
  Transmission Date: 20171127
  Serious: Yes (Death, Hospitalization, Other)
  Sender: FDA-Public Use
  Company Number: US-EXELIXIS-CABO-17009240

PATIENT
  Age: 33 Year
  Sex: Female

DRUGS (4)
  1. MULTICOMPLETE [Concomitant]
  2. COMETRIQ [Suspect]
     Active Substance: CABOZANTINIB S-MALATE
     Indication: LUNG ADENOCARCINOMA
     Dosage: 60 MG, QD
     Route: 048
     Dates: start: 20160423, end: 20161108
  3. LEVOTHYROXINE. [Concomitant]
     Active Substance: LEVOTHYROXINE
  4. COMETRIQ [Suspect]
     Active Substance: CABOZANTINIB S-MALATE
     Dosage: 40 MG, QD
     Route: 048
     Dates: start: 20161109

REACTIONS (7)
  - Confusional state [Unknown]
  - Rash [Unknown]
  - Unresponsive to stimuli [Unknown]
  - Thrombocytopenia [Unknown]
  - Sudden death [Fatal]
  - Off label use [Unknown]
  - Fall [Unknown]

NARRATIVE: CASE EVENT DATE: 20170524
